FAERS Safety Report 5727354-8 (Version None)
Quarter: 2008Q2

REPORT INFORMATION
  Report Type: 
  Country: None (occurrence: None)
  Receive Date: 20080505
  Receipt Date: 20080424
  Transmission Date: 20081010
  Serious: Yes (Hospitalization)
  Sender: FDA-Public Use
  Company Number: JP-SP-2008-00876

PATIENT
  Age: 66 Year
  Sex: Male

DRUGS (1)
  1. IMMUCYST [Suspect]
     Indication: CARCINOMA IN SITU OF BLADDER
     Route: 043
     Dates: start: 20061101

REACTIONS (5)
  - PERINEAL PAIN [None]
  - PROSTATIC ABSCESS [None]
  - PROSTATITIS [None]
  - PYREXIA [None]
  - PYURIA [None]
